FAERS Safety Report 4433080-8 (Version None)
Quarter: 2004Q3

REPORT INFORMATION
  Report Type: 
  Country: None (occurrence: None)
  Receive Date: 20040823
  Receipt Date: 20040810
  Transmission Date: 20050211
  Serious: Yes (Other)
  Sender: FDA-Public Use
  Company Number: 200413964BCC

PATIENT
  Age: 40 Year
  Sex: Female

DRUGS (4)
  1. RID MOUSSE [Suspect]
     Indication: LICE INFESTATION
     Dosage: ONCE, TOPICAL
     Route: 061
     Dates: start: 20040731
  2. RID MOUSSE [Suspect]
     Indication: LICE INFESTATION
     Dosage: ONCE, TOPICAL
     Route: 061
     Dates: start: 20040809
  3. RID MOUSSE [Suspect]
     Indication: LICE INFESTATION
     Dosage: PRN
  4. VERELAN [Concomitant]

REACTIONS (3)
  - FALL [None]
  - HEAD INJURY [None]
  - MUSCLE SPASTICITY [None]
